FAERS Safety Report 19948509 (Version 2)
Quarter: 2021Q4

REPORT INFORMATION
  Report Type: Spontaneous
  Country: FR (occurrence: FR)
  Receive Date: 20211013
  Receipt Date: 20211018
  Transmission Date: 20220303
  Serious: Yes (Hospitalization, Congenital Anomaly, Other)
  Sender: FDA-Public Use
  Company Number: FR-ABBVIE-21K-056-4110516-00

PATIENT
  Sex: Male

DRUGS (2)
  1. VALPROATE SODIUM [Suspect]
     Active Substance: VALPROATE SODIUM
     Indication: Maternal exposure timing unspecified
     Route: 064
  2. CARBAMAZEPINE [Suspect]
     Active Substance: CARBAMAZEPINE
     Indication: Maternal exposure timing unspecified
     Route: 064

REACTIONS (18)
  - Dysmorphism [Unknown]
  - Psychomotor retardation [Unknown]
  - Psychotic disorder [Unknown]
  - Dysgraphia [Unknown]
  - Language disorder [Unknown]
  - Speech disorder [Unknown]
  - Cognitive disorder [Unknown]
  - Cardiac disorder [Unknown]
  - Educational problem [Unknown]
  - Inguinal hernia [Recovered/Resolved]
  - Mutism [Unknown]
  - Pleurisy [Recovered/Resolved]
  - Cardiac malposition [Recovered/Resolved]
  - Bradykinesia [Unknown]
  - Mental impairment [Unknown]
  - Learning disability [Unknown]
  - Pneumonia [Recovered/Resolved]
  - Foetal exposure during pregnancy [Unknown]

NARRATIVE: CASE EVENT DATE: 19810407
